FAERS Safety Report 8803056 (Version 1)
Quarter: 2012Q4

REPORT INFORMATION
  Report Type: 
  Country: DE (occurrence: DE)
  Receive Date: 20120924
  Receipt Date: 20120924
  Transmission Date: 20130627
  Serious: Yes (Hospitalization)
  Sender: FDA-Public Use
  Company Number: DE-SANOFI-AVENTIS-2012SA067268

PATIENT
  Age: 70 Year
  Sex: Male

DRUGS (15)
  1. FUROSEMIDE [Suspect]
     Dosage: dose reduced in Jul 2012
     Route: 065
  2. LANTUS [Suspect]
     Indication: TYPE II DIABETES MELLITUS
     Dosage: Dose:26 unit(s)
     Route: 058
  3. APIDRA [Suspect]
     Indication: TYPE II DIABETES MELLITUS
     Dosage: Dose:120 unit(s)
     Route: 058
  4. HYDROCHLOROTHIAZIDE [Suspect]
     Dosage: dose reduced in Jul 2012
     Route: 065
  5. INVESTIGATIONAL DRUG [Suspect]
     Indication: TYPE II DIABETES MELLITUS
     Route: 065
     Dates: start: 20100827, end: 20120525
  6. PLACEBO [Suspect]
     Indication: TYPE II DIABETES MELLITUS
     Route: 065
     Dates: start: 20100827, end: 20120525
  7. CONTRAST MEDIA [Suspect]
     Route: 065
     Dates: start: 20120522
  8. DIURETICS [Suspect]
     Route: 065
     Dates: end: 201205
  9. BETA BLOCKING AGENTS [Suspect]
     Dosage: dose reduced in Jul 2012
     Route: 065
  10. ACE INHIBITOR NOS [Suspect]
     Dosage: dose reduced in Jul 2012
     Route: 065
  11. ISOSORBIDE MONONITRATE [Suspect]
     Dosage: in July 2012, it was withdrawn after diagnosed with orthostatic dysregulation.
     Route: 065
     Dates: end: 201207
  12. ALLOPURINOL [Suspect]
     Dosage: in July 2012, it was withdrawn after diagnosed with orthostatic dysregulation.
     Route: 065
     Dates: end: 201207
  13. ASPIRIN [Concomitant]
  14. TRIMETAZIDINE [Concomitant]
  15. NICORANDIL [Concomitant]

REACTIONS (9)
  - Renal failure acute [Recovered/Resolved]
  - Oedema peripheral [Recovered/Resolved]
  - Glomerular filtration rate decreased [Recovered/Resolved]
  - Orthostatic intolerance [Recovered/Resolved]
  - Syncope [Recovered/Resolved]
  - Hypotension [Recovered/Resolved]
  - Dizziness [Unknown]
  - Nephropathy toxic [None]
  - Dizziness postural [None]
